FAERS Safety Report 25346822 (Version 1)
Quarter: 2025Q2

REPORT INFORMATION
  Report Type: Report from Study
  Country: CA (occurrence: CA)
  Receive Date: 20250522
  Receipt Date: 20250522
  Transmission Date: 20250716
  Serious: Yes (Other)
  Sender: TAKEDA
  Company Number: CA-TAKEDA-2025TUS047163

PATIENT
  Age: 43 Year
  Sex: Female

DRUGS (2)
  1. VEDOLIZUMAB [Suspect]
     Active Substance: VEDOLIZUMAB
     Indication: Colitis ulcerative
  2. PREDNISONE [Concomitant]
     Active Substance: PREDNISONE

REACTIONS (1)
  - Colitis ulcerative [Recovering/Resolving]

NARRATIVE: CASE EVENT DATE: 20250428
